FAERS Safety Report 4680600-4 (Version None)
Quarter: 2005Q2

REPORT INFORMATION
  Report Type: 
  Country: None (occurrence: None)
  Receive Date: 20050531
  Receipt Date: 20050110
  Transmission Date: 20051028
  Serious: Yes (Life-Threatening, Hospitalization, Other)
  Sender: FDA-Public Use
  Company Number: 2004093686

PATIENT
  Age: 7 Year
  Sex: Male
  Weight: 27.0797 kg

DRUGS (2)
  1. SOLU-MEDROL [Suspect]
     Indication: PNEUMONIA
     Dosage: UNK (20 MG, QD), INTRAVENOUS
     Route: 042
     Dates: start: 20041105, end: 20041105
  2. SALT SOLUTIONS (SALT SOLUTIONS) [Concomitant]

REACTIONS (6)
  - OEDEMA MOUTH [None]
  - RESPIRATORY DISTRESS [None]
  - STRIDOR [None]
  - SWELLING FACE [None]
  - SWOLLEN TONGUE [None]
  - WHEEZING [None]
